FAERS Safety Report 4589277-X (Version None)
Quarter: 2005Q1

REPORT INFORMATION
  Report Type: 
  Country: None (occurrence: None)
  Receive Date: 20050223
  Receipt Date: 20050215
  Transmission Date: 20050727
  Serious: Yes (Disabling, Other)
  Sender: FDA-Public Use
  Company Number: US-ABBOTT-05P-163-0290713-00

PATIENT
  Sex: Female
  Weight: 69.462 kg

DRUGS (6)
  1. SYNTHROID [Suspect]
     Indication: HYPOTHYROIDISM
     Route: 048
  2. GABAPENTIN [Concomitant]
     Indication: SUBDURAL HAEMATOMA
     Route: 048
     Dates: start: 19960101
  3. RISPERIDONE [Concomitant]
     Indication: BRAIN DAMAGE
     Route: 048
     Dates: start: 19960101
  4. ERGOCALCIFEROL [Concomitant]
     Indication: DRUG USE FOR UNKNOWN INDICATION
     Route: 048
     Dates: start: 19960101
  5. CALCIUM CARBONATE [Concomitant]
     Indication: DRUG USE FOR UNKNOWN INDICATION
     Route: 048
  6. ACETYLSALICYLIC ACID [Concomitant]
     Indication: DRUG USE FOR UNKNOWN INDICATION
     Route: 048

REACTIONS (3)
  - GALLBLADDER PAIN [None]
  - HYPOTRICHOSIS [None]
  - SUBDURAL HAEMATOMA [None]
